FAERS Safety Report 24638223 (Version 1)
Quarter: 2024Q4

REPORT INFORMATION
  Report Type: Spontaneous
  Country: CN (occurrence: CN)
  Receive Date: 20241119
  Receipt Date: 20241119
  Transmission Date: 20250115
  Serious: Yes (Other)
  Sender: ALCON
  Company Number: CN-ALCON LABORATORIES-ALC2024CN005022

PATIENT
  Age: 12 Year
  Sex: Male
  Weight: 37 kg

DRUGS (3)
  1. FLUORESCITE [Suspect]
     Active Substance: FLUORESCEIN SODIUM
     Indication: Angiogram retina
     Dosage: 0.3 G, ONCE/SINGLE
     Route: 042
     Dates: start: 20241109, end: 20241109
  2. INDOCYANINE GREEN [Suspect]
     Active Substance: INDOCYANINE GREEN
     Indication: Angiogram retina
     Dosage: 25 MG, ONCE/SINGLE
     Route: 042
     Dates: start: 20241109, end: 20241109
  3. SODIUM CHLORIDE [Concomitant]
     Active Substance: SODIUM CHLORIDE
     Indication: Vehicle solution use
     Dosage: 250 ML, ONCE/SINGLE
     Route: 041
     Dates: start: 20241109, end: 20241109

REACTIONS (3)
  - Blood pressure increased [Recovering/Resolving]
  - Laryngeal oedema [Recovering/Resolving]
  - Rash [Recovering/Resolving]

NARRATIVE: CASE EVENT DATE: 20241109
